FAERS Safety Report 7985000-7 (Version None)
Quarter: 2011Q4

REPORT INFORMATION
  Report Type: 
  Country: None (occurrence: None)
  Receive Date: 20111216
  Receipt Date: 20111109
  Transmission Date: 20120403
  Serious: No
  Sender: FDA-Public Use
  Company Number: US-ALLERGAN-1114727US

PATIENT
  Sex: Female

DRUGS (2)
  1. THYROID MEDICATION [Concomitant]
     Indication: PRODUCT USED FOR UNKNOWN INDICATION
  2. LATISSE [Suspect]
     Indication: PRODUCT USED FOR UNKNOWN INDICATION
     Route: 061

REACTIONS (4)
  - ALOPECIA [None]
  - ORAL DISORDER [None]
  - APHTHOUS STOMATITIS [None]
  - SWOLLEN TONGUE [None]
